FAERS Safety Report 7207381-4 (Version None)
Quarter: 2010Q4

REPORT INFORMATION
  Report Type: 
  Country: None (occurrence: None)
  Receive Date: 20101221
  Receipt Date: 20101214
  Transmission Date: 20110411
  Serious: Yes (Disabling)
  Sender: FDA-Public Use
  Company Number: CIP10003046

PATIENT
  Age: 79 Year
  Sex: Female

DRUGS (1)
  1. BENET (RISEDRONATE SODIUM) TABLET, 2.5MG [Suspect]
     Indication: OSTEOPOROSIS
     Dosage: 2.5 MG ONCE DAILY, ORAL
     Route: 048
     Dates: start: 20080101, end: 20100511

REACTIONS (12)
  - ABSCESS JAW [None]
  - BONE DISORDER [None]
  - CHOLECYSTECTOMY [None]
  - DENTAL FISTULA [None]
  - ORAL CAVITY FISTULA [None]
  - OSTEOMYELITIS [None]
  - OSTEONECROSIS OF JAW [None]
  - OSTEOSCLEROSIS [None]
  - PERIODONTITIS [None]
  - PURULENT DISCHARGE [None]
  - SUBMANDIBULAR MASS [None]
  - TOOTHACHE [None]
